FAERS Safety Report 24767146 (Version 1)
Quarter: 2024Q4

REPORT INFORMATION
  Report Type: Spontaneous
  Country: IL (occurrence: IL)
  Receive Date: 20241223
  Receipt Date: 20241223
  Transmission Date: 20250115
  Serious: Yes (Other)
  Sender: TEVA
  Company Number: IL-TEVA-VS-3277559

PATIENT
  Age: 40 Year
  Sex: Female

DRUGS (1)
  1. SPIRONOLACTONE [Suspect]
     Active Substance: SPIRONOLACTONE
     Indication: Product used for unknown indication
     Dosage: TREATED WITH THE PRODUCT FOR ABOUT 15 YEARS
     Route: 065

REACTIONS (4)
  - Foreign body in throat [Unknown]
  - Product taste abnormal [Unknown]
  - Product use complaint [Unknown]
  - Product physical issue [Unknown]
